FAERS Safety Report 15251472 (Version 1)
Quarter: 2018Q3

REPORT INFORMATION
  Report Type: Spontaneous
  Country: US (occurrence: US)
  Receive Date: 20180807
  Receipt Date: 20180807
  Transmission Date: 20181010
  Serious: Yes (Hospitalization)
  Sender: FDA-Public Use
  Company Number: US-NORTHSTAR HEALTHCARE HOLDINGS-US-2018NSR000130

PATIENT
  Age: 55 Year
  Sex: Male

DRUGS (1)
  1. BACLOFEN. [Suspect]
     Active Substance: BACLOFEN
     Indication: HICCUPS
     Dosage: 5 MG DOSES, FOUR TIMES IN 24 HOURS

REACTIONS (2)
  - Toxicity to various agents [Unknown]
  - Neurotoxicity [Recovering/Resolving]
